FAERS Safety Report 7564582-3 (Version None)
Quarter: 2011Q2

REPORT INFORMATION
  Report Type: 
  Country: None (occurrence: None)
  Receive Date: 20110622
  Receipt Date: 20100805
  Transmission Date: 20111010
  Serious: Yes (Other)
  Sender: FDA-Public Use
  Company Number: US-MYLANLABS-2010S1010509

PATIENT
  Age: 29 Year
  Sex: Male
  Weight: 97 kg

DRUGS (4)
  1. CLOZAPINE [Suspect]
     Indication: MANIA
     Route: 048
     Dates: start: 20100528, end: 20100618
  2. METFORMIN HCL [Concomitant]
     Route: 048
  3. CLOZAPINE [Suspect]
     Indication: SCHIZOAFFECTIVE DISORDER
     Route: 048
     Dates: start: 20100528, end: 20100618
  4. M.V.I. [Concomitant]
     Route: 048

REACTIONS (1)
  - GRANULOCYTOPENIA [None]
